FAERS Safety Report 8242498-7 (Version None)
Quarter: 2012Q1

REPORT INFORMATION
  Report Type: 
  Country: None (occurrence: None)
  Receive Date: 20120314
  Receipt Date: 20110523
  Transmission Date: 20120608
  Serious: Yes (Other)
  Sender: FDA-Public Use
  Company Number: PHHY2011US44464

PATIENT
  Age: 64 Year
  Sex: Male
  Weight: 72.6 kg

DRUGS (2)
  1. DEPAKOTE [Concomitant]
  2. FANAPT [Suspect]
     Indication: SCHIZOAFFECTIVE DISORDER
     Dosage: 12 MG, BID, ORAL
     Route: 048
     Dates: start: 20110501, end: 20110514

REACTIONS (1)
  - WHITE BLOOD CELL COUNT DECREASED [None]
